FAERS Safety Report 5084504-7 (Version None)
Quarter: 2006Q3

REPORT INFORMATION
  Report Type: 
  Country: None (occurrence: None)
  Receive Date: 20060821
  Receipt Date: 20060517
  Transmission Date: 20061208
  Serious: Yes (Hospitalization)
  Sender: FDA-Public Use
  Company Number: 2006CG00889

PATIENT
  Age: 2 Month
  Sex: Male

DRUGS (2)
  1. MARCAINE RACHIANESTHESIE [Suspect]
     Indication: SPINAL ANAESTHESIA
     Route: 037
     Dates: start: 20060327, end: 20060327
  2. SEVORANE [Concomitant]
     Indication: ANAESTHESIA
     Route: 055
     Dates: start: 20060327, end: 20060327

REACTIONS (3)
  - CONVULSION [None]
  - GRAND MAL CONVULSION [None]
  - OVERDOSE [None]
